FAERS Safety Report 8941824 (Version 1)
Quarter: 2012Q4

REPORT INFORMATION
  Report Type: 
  Country: US (occurrence: US)
  Receive Date: 20121203
  Receipt Date: 20121203
  Transmission Date: 20130627
  Serious: No
  Sender: FDA-Public Use
  Company Number: US-BAYER-2012-123498

PATIENT
  Age: 47 Year
  Sex: Female

DRUGS (1)
  1. BETASERON [Suspect]
     Indication: MS
     Dosage: 0.3 mg, QOD
     Route: 058
     Dates: start: 20080519

REACTIONS (4)
  - Injection site erythema [None]
  - Injection site swelling [None]
  - Injection site mass [None]
  - Injection site pain [None]
